FAERS Safety Report 4570429-X (Version None)
Quarter: 2005Q1

REPORT INFORMATION
  Report Type: 
  Country: None (occurrence: None)
  Receive Date: 20050204
  Receipt Date: 20050124
  Transmission Date: 20050727
  Serious: Yes (Other)
  Sender: FDA-Public Use
  Company Number: US-MERCK-0501USA03586

PATIENT
  Age: 77 Year
  Sex: Male

DRUGS (10)
  1. PROSCAR [Suspect]
     Indication: BENIGN PROSTATIC HYPERPLASIA
     Route: 048
     Dates: start: 20050106
  2. PROSCAR [Suspect]
     Indication: URINARY TRACT DISORDER
     Route: 048
     Dates: start: 20050106
  3. FLOMAX [Concomitant]
     Route: 065
  4. [THERAPY UNSPECIFIED] [Concomitant]
     Route: 065
  5. COMBIVENT [Concomitant]
     Route: 065
  6. ATROVENT [Concomitant]
     Route: 065
  7. AMITRIPTYLINE HYDROCHLORIDE [Concomitant]
     Route: 065
  8. PRINIVIL [Concomitant]
     Route: 048
  9. [THERAPY UNSPECIFIED] [Concomitant]
     Route: 065
  10. OXYGEN [Concomitant]
     Route: 065

REACTIONS (1)
  - DYSPNOEA [None]
